FAERS Safety Report 24924705 (Version 1)
Quarter: 2025Q1

REPORT INFORMATION
  Report Type: Report from Study
  Country: CO (occurrence: CO)
  Receive Date: 20250204
  Receipt Date: 20250204
  Transmission Date: 20250409
  Serious: No
  Sender: EXELIXIS
  Company Number: CO-IPSEN Group, Research and Development-2024-04808

PATIENT
  Age: 66 Year
  Sex: Female
  Weight: 71 kg

DRUGS (8)
  1. CABOMETYX [Suspect]
     Active Substance: CABOZANTINIB S-MALATE
     Indication: Renal cell carcinoma
     Route: 048
     Dates: start: 20230602, end: 20240909
  2. CABOMETYX [Suspect]
     Active Substance: CABOZANTINIB S-MALATE
     Route: 048
     Dates: start: 20241017, end: 20241115
  3. LOSARTAN [Concomitant]
     Active Substance: LOSARTAN
     Indication: Blood pressure fluctuation
     Dosage: A HALF TABLET AT MORNING AND A HALF TABLET AT NIGHT
     Dates: start: 2018
  4. PREGABALIN [Concomitant]
     Active Substance: PREGABALIN
     Indication: Pain management
     Dosage: ONE TABLET AT NIGHT AT NINE PM
     Dates: start: 2021
  5. PREGABALIN [Concomitant]
     Active Substance: PREGABALIN
     Dosage: ONE TABLET AT MORNING AT SEVEN AM
     Dates: start: 2021
  6. LEVOTHYROXINE [Concomitant]
     Active Substance: LEVOTHYROXINE
     Indication: Thyroid cancer
     Dates: start: 2020
  7. FENTANYL [Concomitant]
     Active Substance: FENTANYL
     Indication: Pain management
     Dates: start: 2022
  8. ACETAMINOPHEN [Concomitant]
     Active Substance: ACETAMINOPHEN
     Indication: Pain
     Dates: start: 202310

REACTIONS (6)
  - Anxiety [Not Recovered/Not Resolved]
  - Product dose omission issue [Unknown]
  - Product supply issue [Unknown]
  - Product dose omission issue [Unknown]
  - Product supply issue [Unknown]
  - Treatment noncompliance [Unknown]

NARRATIVE: CASE EVENT DATE: 20230101
